FAERS Safety Report 24879569 (Version 2)
Quarter: 2025Q1

REPORT INFORMATION
  Report Type: Report from Study
  Country: US (occurrence: US)
  Receive Date: 20250123
  Receipt Date: 20250304
  Transmission Date: 20250408
  Serious: Yes (Disabling)
  Sender: EMD SERONO INC
  Company Number: US-Merck Healthcare KGaA-2025002703

PATIENT
  Age: 28 Year
  Sex: Female

DRUGS (2)
  1. REBIF [Suspect]
     Active Substance: INTERFERON BETA-1A
     Indication: Product used for unknown indication
     Dates: start: 20060516, end: 20070321
  2. REBIF [Suspect]
     Active Substance: INTERFERON BETA-1A
     Dates: start: 20120809, end: 20130624

REACTIONS (2)
  - Optic neuritis [Unknown]
  - Product administration interrupted [Unknown]

NARRATIVE: CASE EVENT DATE: 20060101
